FAERS Safety Report 6814509-4 (Version None)
Quarter: 2010Q2

REPORT INFORMATION
  Report Type: 
  Country: None (occurrence: None)
  Receive Date: 20100629
  Receipt Date: 20100614
  Transmission Date: 20101027
  Serious: Yes (Other)
  Sender: FDA-Public Use
  Company Number: AUR-APL-2010-01604

PATIENT
  Sex: Male

DRUGS (2)
  1. SULFAMETHOXAZOLE AND TRIMETHOPRIM [Suspect]
  2. VFEND [Suspect]
     Dosage: 300MG, BID

REACTIONS (6)
  - ASTHENIA [None]
  - ERYTHEMA [None]
  - FATIGUE [None]
  - FLAT AFFECT [None]
  - MALAISE [None]
  - SCLERODERMA [None]
